FAERS Safety Report 7402858-0 (Version None)
Quarter: 2011Q2

REPORT INFORMATION
  Report Type: 
  Country: None (occurrence: None)
  Receive Date: 20110408
  Receipt Date: 20110405
  Transmission Date: 20111010
  Serious: Yes (Hospitalization, Disabling)
  Sender: FDA-Public Use
  Company Number: FR-ABBOTT-00P-056-0504302-00

PATIENT
  Age: 50 Year
  Sex: Male

DRUGS (1)
  1. ENANTONE LP 3.75 MG PREP INJ [Suspect]
     Indication: PROSTATE CANCER
     Route: 058
     Dates: start: 19990401, end: 19991201

REACTIONS (1)
  - RETINAL VEIN THROMBOSIS [None]
